FAERS Safety Report 16872848 (Version 2)
Quarter: 2025Q2

REPORT INFORMATION
  Report Type: Spontaneous
  Country: PL (occurrence: PL)
  Receive Date: 20191001
  Receipt Date: 20250627
  Transmission Date: 20250716
  Serious: Yes (Other)
  Sender: AUROBINDO
  Company Number: PL-AUROBINDO-AUR-APL-2019-063809

PATIENT
  Age: 38 Year
  Sex: Female

DRUGS (7)
  1. IMATINIB [Suspect]
     Active Substance: IMATINIB
     Indication: Chronic myeloid leukaemia
     Dosage: 400 MILLIGRAM, ONCE A DAY
     Route: 065
     Dates: start: 200505, end: 200602
  2. IMATINIB [Suspect]
     Active Substance: IMATINIB
     Dosage: 400 MILLIGRAM, ONCE A DAY
     Route: 065
     Dates: start: 2006
  3. ACETAMINOPHEN [Suspect]
     Active Substance: ACETAMINOPHEN
     Indication: Nasopharyngitis
     Route: 065
  4. HYDROXYUREA [Concomitant]
     Active Substance: HYDROXYUREA
     Indication: Chronic myeloid leukaemia
     Route: 065
     Dates: start: 2002, end: 2004
  5. HYDROXYUREA [Concomitant]
     Active Substance: HYDROXYUREA
     Route: 030
     Dates: start: 2005
  6. NILOTINIB [Concomitant]
     Active Substance: NILOTINIB
     Indication: Chronic myeloid leukaemia
     Dosage: 400 MILLIGRAM, TWO TIMES A DAY
     Route: 065
     Dates: start: 200611
  7. CETIRIZINE [Concomitant]
     Active Substance: CETIRIZINE HYDROCHLORIDE
     Indication: Chronic myeloid leukaemia
     Route: 065

REACTIONS (4)
  - Hepatotoxicity [Recovered/Resolved]
  - Tongue discolouration [Recovered/Resolved]
  - Liver injury [Recovered/Resolved]
  - Drug intolerance [Unknown]

NARRATIVE: CASE EVENT DATE: 20060201
